FAERS Safety Report 19429165 (Version 1)
Quarter: 2021Q2

REPORT INFORMATION
  Report Type: Spontaneous
  Country: US (occurrence: GB)
  Receive Date: 20210617
  Receipt Date: 20210617
  Transmission Date: 20210717
  Serious: Yes (Hospitalization)
  Sender: FDA-Public Use
  Company Number: GB-SA-2021SA199506

PATIENT
  Sex: Female

DRUGS (1)
  1. AUBAGIO [Suspect]
     Active Substance: TERIFLUNOMIDE
     Indication: MULTIPLE SCLEROSIS
     Dosage: 14 MG
     Route: 048
     Dates: start: 201812, end: 202106

REACTIONS (3)
  - Hospitalisation [Unknown]
  - Adverse drug reaction [Unknown]
  - Drug ineffective [Unknown]
